FAERS Safety Report 10027986 (Version 2)
Quarter: 2014Q1

REPORT INFORMATION
  Report Type: Spontaneous
  Country: CN (occurrence: CN)
  Receive Date: 20140321
  Receipt Date: 20140321
  Transmission Date: 20141002
  Serious: Yes (Other)
  Sender: FDA-Public Use
  Company Number: CN-BAXTER-2014BAX008134

PATIENT
  Age: 2 Year
  Sex: Female

DRUGS (5)
  1. 0.2% FLUCONAZOLE AND 0.9% SODIUM CHLORIDE INJECTION [Suspect]
     Indication: INFECTION PROPHYLAXIS
     Route: 065
  2. CEFOPERAZONE SULBACTAM [Suspect]
     Indication: INFECTION PROPHYLAXIS
     Route: 065
  3. MEROPENEM [Suspect]
     Indication: INFECTION PROPHYLAXIS
     Route: 065
  4. ERYTHROMYCIN [Suspect]
     Indication: INFECTION PROPHYLAXIS
     Route: 065
  5. HUMAN GAMMAGLOBULIN [Concomitant]
     Indication: SUPPORTIVE CARE
     Route: 065

REACTIONS (2)
  - Interstitial lung disease [Unknown]
  - Condition aggravated [Unknown]
